FAERS Safety Report 7441300-0 (Version None)
Quarter: 2011Q2

REPORT INFORMATION
  Report Type: 
  Country: None (occurrence: None)
  Receive Date: 20110428
  Receipt Date: 20110415
  Transmission Date: 20111010
  Serious: No
  Sender: FDA-Public Use
  Company Number: US-BIOGENIDEC-2011BI015367

PATIENT
  Sex: Female

DRUGS (2)
  1. TYSABRI [Suspect]
     Indication: MULTIPLE SCLEROSIS
     Route: 042
     Dates: start: 20070402
  2. HYDROCHLOROTHIAZIDE [Concomitant]
     Indication: RENAL CELL CARCINOMA
     Dates: start: 20010101

REACTIONS (2)
  - STRESS [None]
  - MENTAL IMPAIRMENT [None]
